FAERS Safety Report 7917460-1 (Version None)
Quarter: 2011Q4

REPORT INFORMATION
  Report Type: 
  Country: None (occurrence: None)
  Receive Date: 20111114
  Receipt Date: 20111028
  Transmission Date: 20120403
  Serious: Yes (Hospitalization, Disabling)
  Sender: FDA-Public Use
  Company Number: TR-1188479

PATIENT
  Sex: Male

DRUGS (1)
  1. ALCAINE [Suspect]
     Dosage: ( OPHTHALMIC)
     Route: 047

REACTIONS (12)
  - OCULAR HYPERAEMIA [None]
  - ERYTHEMA OF EYELID [None]
  - EYE IRRITATION [None]
  - CORNEAL INFILTRATES [None]
  - CONJUNCTIVAL HYPERAEMIA [None]
  - CORNEAL DEPOSITS [None]
  - EYELID OEDEMA [None]
  - VISUAL ACUITY REDUCED [None]
  - LACRIMATION INCREASED [None]
  - CORNEAL EPITHELIUM DEFECT [None]
  - EYE PAIN [None]
  - DRUG ABUSE [None]
